FAERS Safety Report 24669047 (Version 1)
Quarter: 2024Q4

REPORT INFORMATION
  Report Type: Other
  Country: TW (occurrence: TW)
  Receive Date: 20241127
  Receipt Date: 20241127
  Transmission Date: 20250115
  Serious: Yes (Hospitalization, Other)
  Sender: ANI
  Company Number: TW-ANIPHARMA-012947

PATIENT
  Age: 67 Year
  Sex: Male

DRUGS (14)
  1. RISPERIDONE [Suspect]
     Active Substance: RISPERIDONE
     Indication: Agitation
  2. BIPERIDEN [Concomitant]
     Active Substance: BIPERIDEN
     Indication: Product used for unknown indication
  3. QUETIAPINE [Concomitant]
     Active Substance: QUETIAPINE
     Indication: Alcohol use disorder
     Dosage: TOTAL
  4. PAROXETINE [Concomitant]
     Active Substance: PAROXETINE
     Indication: Alcohol use disorder
     Dosage: TAKEN DOWN COMPLETELY
  5. PAROXETINE [Concomitant]
     Active Substance: PAROXETINE
     Indication: Alcoholic psychosis
     Dosage: TAKEN DOWN COMPLETELY
  6. PAROXETINE [Concomitant]
     Active Substance: PAROXETINE
     Indication: Depressed mood
  7. QUETIAPINE [Concomitant]
     Active Substance: QUETIAPINE
     Indication: Agitation
  8. QUETIAPINE [Concomitant]
     Active Substance: QUETIAPINE
     Indication: Behaviour disorder
     Dosage: ONCE BEFORE BED
  9. QUETIAPINE [Concomitant]
     Active Substance: QUETIAPINE
     Indication: Agitation
     Dosage: INCREASED
  10. RISPERIDONE [Suspect]
     Active Substance: RISPERIDONE
     Indication: Agitation
     Dosage: DOSE INCREASED
  11. QUETIAPINE [Concomitant]
     Active Substance: QUETIAPINE
     Indication: Agitation
     Dosage: REDUCED
  12. QUETIAPINE [Concomitant]
     Active Substance: QUETIAPINE
     Indication: Alcoholic psychosis
     Dosage: TOTAL
  13. RISPERIDONE [Suspect]
     Active Substance: RISPERIDONE
     Indication: Jealous delusion
     Dosage: DOSE WAS DECREASED
  14. RISPERIDONE [Suspect]
     Active Substance: RISPERIDONE
     Indication: Jealous delusion

REACTIONS (3)
  - Serotonin syndrome [Recovering/Resolving]
  - Extrapyramidal disorder [Recovering/Resolving]
  - Drug interaction [Unknown]
